FAERS Safety Report 4512431-X (Version None)
Quarter: 2004Q4

REPORT INFORMATION
  Report Type: 
  Country: None (occurrence: None)
  Receive Date: 20041124
  Receipt Date: 20041109
  Transmission Date: 20050328
  Serious: No
  Sender: FDA-Public Use
  Company Number: USA041183618

PATIENT
  Age: 44 Year
  Sex: Male
  Weight: 75 kg

DRUGS (3)
  1. HUMULIN N [Suspect]
     Indication: DIABETES MELLITUS
     Dosage: 40 U/1 IN THE MORNING
  2. HUMULIN R [Suspect]
     Indication: DIABETES MELLITUS
  3. HUMULIN 70/30 [Suspect]
     Indication: DIABETES MELLITUS

REACTIONS (3)
  - CEREBROVASCULAR ACCIDENT [None]
  - HEMIPLEGIA [None]
  - SUBDURAL HAEMATOMA [None]
